FAERS Safety Report 14275153 (Version 1)
Quarter: 2017Q4

REPORT INFORMATION
  Report Type: Report from Study
  Country: US (occurrence: US)
  Receive Date: 20171212
  Receipt Date: 20171212
  Transmission Date: 20180321
  Serious: Yes (Hospitalization, Other)
  Sender: FDA-Public Use
  Company Number: US-ROCHE-2032492

PATIENT
  Age: 48 Year
  Sex: Female
  Weight: 83.3 kg

DRUGS (3)
  1. TRASTUZUMAB. [Suspect]
     Active Substance: TRASTUZUMAB
     Indication: PRODUCT USED FOR UNKNOWN INDICATION
     Route: 065
  2. ERIBULIN [Suspect]
     Active Substance: ERIBULIN
     Indication: PRODUCT USED FOR UNKNOWN INDICATION
     Route: 065
  3. SONIDEGIB [Suspect]
     Active Substance: SONIDEGIB
     Indication: NEOPLASM
     Dosage: MOST RECENT DOSE PRIOR TO SAE: 31/MAR/2015
     Route: 048
     Dates: start: 20150216, end: 20150331

REACTIONS (4)
  - Febrile neutropenia [Recovered/Resolved]
  - Metastases to bone [Unknown]
  - Hepatic failure [Unknown]
  - Breast cancer metastatic [Unknown]

NARRATIVE: CASE EVENT DATE: 20150414
